FAERS Safety Report 20376231 (Version 1)
Quarter: 2022Q1

REPORT INFORMATION
  Report Type: Other
  Country: NL (occurrence: None)
  Receive Date: 20220125
  Receipt Date: 20220125
  Transmission Date: 20220423
  Serious: No
  Sender: FDA-Public Use
  Company Number: NL-ROCHE-3007489

PATIENT
  Age: 25 Year
  Sex: Male
  Weight: 110 kg

DRUGS (2)
  1. OCRELIZUMAB [Suspect]
     Active Substance: OCRELIZUMAB
     Indication: Relapsing-remitting multiple sclerosis
     Route: 042
     Dates: start: 20190419
  2. COVID-19 VACCINE [Concomitant]
     Indication: Prophylaxis
     Route: 030
     Dates: start: 20211116, end: 20211116

REACTIONS (1)
  - Influenza [Recovered/Resolved]

NARRATIVE: CASE EVENT DATE: 20211201
